FAERS Safety Report 9482315 (Version 2)
Quarter: 2014Q2

REPORT INFORMATION
  Report Type: Spontaneous
  Country: CH (occurrence: None)
  Receive Date: 20130822
  Receipt Date: 20140507
  Transmission Date: 20141212
  Serious: Yes (Hospitalization)
  Sender: FDA-Public Use
  Company Number: JPI-P-034467

PATIENT
  Age: 52 Year
  Sex: Female

DRUGS (3)
  1. XYREM [Suspect]
     Indication: HEADACHE
     Dosage: 4.5GM , 2 IN 1 D
     Route: 048
     Dates: start: 2006
  2. XYREM [Suspect]
     Indication: INSOMNIA
     Dosage: 4.5GM , 2 IN 1 D
     Route: 048
     Dates: start: 2006
  3. TOPIRAMATE [Suspect]
     Indication: PRODUCT USED FOR UNKNOWN INDICATION
     Dosage: 1 D

REACTIONS (6)
  - Cluster headache [None]
  - Condition aggravated [None]
  - Drug interaction [None]
  - Coma [None]
  - Confusional state [None]
  - Myoclonus [None]
